FAERS Safety Report 21504780 (Version 2)
Quarter: 2022Q4

REPORT INFORMATION
  Report Type: Spontaneous
  Country: DK (occurrence: DK)
  Receive Date: 20221025
  Receipt Date: 20221117
  Transmission Date: 20230112
  Serious: Yes (Hospitalization, Other)
  Sender: FDA-Public Use
  Company Number: DK-BRISTOL-MYERS SQUIBB COMPANY-2022-121687

PATIENT
  Sex: Male

DRUGS (3)
  1. DEXAMETHASONE [Suspect]
     Active Substance: DEXAMETHASONE
     Indication: Plasma cell myeloma
     Route: 065
  2. CYCLOPHOSPHAMIDE [Suspect]
     Active Substance: CYCLOPHOSPHAMIDE
     Indication: Plasma cell myeloma
     Route: 065
  3. POMALIDOMIDE [Suspect]
     Active Substance: POMALIDOMIDE
     Indication: Plasma cell myeloma
     Route: 065

REACTIONS (30)
  - Seizure [Unknown]
  - Loss of consciousness [Unknown]
  - COVID-19 [Unknown]
  - Staphylococcal infection [Unknown]
  - Syncope [Unknown]
  - Tachycardia [Unknown]
  - Bradycardia [Unknown]
  - Drug ineffective [Unknown]
  - Fluid retention [Unknown]
  - Dyspnoea [Unknown]
  - Muscle spasms [Unknown]
  - Fatigue [Unknown]
  - Movement disorder [Unknown]
  - Restlessness [Unknown]
  - Anaemia [Unknown]
  - Condition aggravated [Unknown]
  - Tremor [Unknown]
  - Vomiting [Unknown]
  - Decreased appetite [Unknown]
  - Diarrhoea [Unknown]
  - Asthenia [Unknown]
  - Constipation [Unknown]
  - Taste disorder [Unknown]
  - Peripheral swelling [Unknown]
  - Stridor [Unknown]
  - Dry mouth [Unknown]
  - Myoclonus [Unknown]
  - Insomnia [Unknown]
  - Nausea [Unknown]
  - Off label use [Unknown]

NARRATIVE: CASE EVENT DATE: 20221001
